FAERS Safety Report 4477786-3 (Version None)
Quarter: 2004Q4

REPORT INFORMATION
  Report Type: 
  Country: None (occurrence: None)
  Receive Date: 20041014
  Receipt Date: 20040928
  Transmission Date: 20050328
  Serious: Yes (Hospitalization)
  Sender: FDA-Public Use
  Company Number: 2004-FF-00565FF

PATIENT
  Age: 56 Year
  Sex: Female

DRUGS (14)
  1. JOSIR (TAMSULOSIN) [Suspect]
     Dosage: PO
     Route: 048
  2. TOPALGIC [Concomitant]
  3. DUPHALAC [Concomitant]
  4. ARAVA [Concomitant]
  5. ACTONEL [Concomitant]
  6. CORTANCYL (PREDNISONE) [Concomitant]
  7. TENORMIN [Concomitant]
  8. CHLORMADINONE ACETATE TAB [Concomitant]
  9. ALDACTONE [Concomitant]
  10. OMEPRAZOLE [Concomitant]
  11. PROZAC [Concomitant]
  12. DERMESTRIL [Concomitant]
  13. ACETAMINOPHEN [Concomitant]
  14. DIFFU-K [Concomitant]

REACTIONS (9)
  - ALANINE AMINOTRANSFERASE INCREASED [None]
  - ASPARTATE AMINOTRANSFERASE INCREASED [None]
  - BLOOD ALKALINE PHOSPHATASE INCREASED [None]
  - DRUG INEFFECTIVE [None]
  - GAMMA-GLUTAMYLTRANSFERASE INCREASED [None]
  - HEPATOCELLULAR DAMAGE [None]
  - LOCALISED INFECTION [None]
  - OSTEITIS [None]
  - PROTHROMBIN TIME SHORTENED [None]
